FAERS Safety Report 15598439 (Version 1)
Quarter: 2018Q4

REPORT INFORMATION
  Report Type: Spontaneous
  Country: US (occurrence: US)
  Receive Date: 20181105
  Receipt Date: 20181105
  Transmission Date: 20190205
  Serious: No
  Sender: FDA-Public Use
  Company Number: None

PATIENT
  Sex: Female

DRUGS (2)
  1. CYCLOSPORINE. [Suspect]
     Active Substance: CYCLOSPORINE
     Indication: DERMATITIS ATOPIC
     Dosage: ?          OTHER FREQUENCY:AM;?
     Route: 048
     Dates: start: 20180509
  2. CYCLOSPORINE. [Suspect]
     Active Substance: CYCLOSPORINE
     Route: 048
     Dates: start: 20180509

REACTIONS (1)
  - Renal disorder [None]
